FAERS Safety Report 4961492-2 (Version None)
Quarter: 2006Q1

REPORT INFORMATION
  Report Type: 
  Country: None (occurrence: None)
  Receive Date: 20060329
  Receipt Date: 20060317
  Transmission Date: 20060701
  Serious: Yes (Hospitalization)
  Sender: FDA-Public Use
  Company Number: S06-SWI-00995-01

PATIENT
  Age: 48 Year
  Sex: Female

DRUGS (3)
  1. CITALOPRAM HYDROBROMIDE [Suspect]
     Indication: CONDUCT DISORDER
     Dosage: 20 MG TID; PO
     Route: 048
     Dates: start: 20051210, end: 20051215
  2. CITALOPRAM HYDROBROMIDE [Suspect]
     Indication: CONDUCT DISORDER
     Dosage: 20 MG QD; PO
     Route: 048
     Dates: start: 20051203, end: 20051209
  3. PAROXETINE HYDROCHLORIDE [Suspect]
     Indication: CONDUCT DISORDER
     Dosage: 20 MG QD; PO
     Route: 048
     Dates: start: 20050801, end: 20051202

REACTIONS (3)
  - COGWHEEL RIGIDITY [None]
  - CROSS SENSITIVITY REACTION [None]
  - RESTLESS LEGS SYNDROME [None]
